FAERS Safety Report 24665890 (Version 1)
Quarter: 2024Q4

REPORT INFORMATION
  Report Type: Spontaneous
  Country: SK (occurrence: SK)
  Receive Date: 20241126
  Receipt Date: 20241126
  Transmission Date: 20250115
  Serious: Yes (Other)
  Sender: ANI
  Company Number: SK-ANIPHARMA-2024-SK-000008

PATIENT
  Age: 51 Year
  Sex: Female

DRUGS (4)
  1. ARIMIDEX [Suspect]
     Active Substance: ANASTROZOLE
     Indication: Invasive lobular breast carcinoma
     Dosage: 1 TABLET ORALLY DAILY
     Route: 048
  2. GOSERELIN ACETATE [Suspect]
     Active Substance: GOSERELIN ACETATE
     Dosage: 3.6 MG EVERY 28 DAYS/10.8 MG; SUBCUTANEOUS
     Route: 058
  3. RIBOCICLIB [Suspect]
     Active Substance: RIBOCICLIB
     Dosage: 600 MG FOR 21 DAYS WITH A 7-DAY BREAK
     Route: 048
     Dates: start: 20230314
  4. DENOSUMAB [Concomitant]
     Active Substance: DENOSUMAB

REACTIONS (2)
  - Metastases to lung [Unknown]
  - Breast cancer [Unknown]
